FAERS Safety Report 25816520 (Version 2)
Quarter: 2025Q3

REPORT INFORMATION
  Report Type: Report from Study
  Country: US (occurrence: US)
  Receive Date: 20250918
  Receipt Date: 20250922
  Transmission Date: 20251021
  Serious: No
  Sender: BRISTOL-MYERS SQUIBB COMPANY
  Company Number: US-BRISTOL-MYERS SQUIBB COMPANY-2025-128545

PATIENT
  Age: 39 Year
  Sex: Female
  Weight: 113.4 kg

DRUGS (1)
  1. SOTYKTU [Suspect]
     Active Substance: DEUCRAVACITINIB
     Indication: Psoriasis
     Dates: start: 2025

REACTIONS (8)
  - Erythema [Unknown]
  - Pruritus [Unknown]
  - Musculoskeletal stiffness [Unknown]
  - Pain [Unknown]
  - Rash [Unknown]
  - Swelling [Unknown]
  - Feeling hot [Unknown]
  - Movement disorder [Unknown]

NARRATIVE: CASE EVENT DATE: 20250901
